FAERS Safety Report 24143615 (Version 1)
Quarter: 2024Q3

REPORT INFORMATION
  Report Type: Spontaneous
  Country: US (occurrence: US)
  Receive Date: 20240727
  Receipt Date: 20240727
  Transmission Date: 20241017
  Serious: No
  Sender: SANOFI AVENTIS
  Company Number: US-SA-SAC20240723000944

PATIENT
  Age: 70 Year
  Sex: Female

DRUGS (8)
  1. DUPIXENT [Suspect]
     Active Substance: DUPILUMAB
     Indication: Dermatitis atopic
     Dosage: 300 MG, QOW
     Route: 058
     Dates: start: 2024
  2. ZOLPIDEM TARTRATE [Concomitant]
     Active Substance: ZOLPIDEM TARTRATE
  3. LISINOPRIL [Concomitant]
     Active Substance: LISINOPRIL
  4. VALACYCLOVIR [Concomitant]
     Active Substance: VALACYCLOVIR HYDROCHLORIDE
  5. ESTRADIOL [Concomitant]
     Active Substance: ESTRADIOL
  6. MULTAQ [Concomitant]
     Active Substance: DRONEDARONE
  7. PROGESTERONE [Concomitant]
     Active Substance: PROGESTERONE
  8. ESTROGEL [Concomitant]
     Active Substance: ESTRADIOL

REACTIONS (1)
  - Fatigue [Not Recovered/Not Resolved]

NARRATIVE: CASE EVENT DATE: 20240608
